FAERS Safety Report 4542231-6 (Version None)
Quarter: 2004Q4

REPORT INFORMATION
  Report Type: 
  Country: None (occurrence: None)
  Receive Date: 20041227
  Receipt Date: 20041214
  Transmission Date: 20050328
  Serious: Yes (Other)
  Sender: FDA-Public Use
  Company Number: HQWYE038416DEC04

PATIENT
  Age: 75 Year
  Sex: Male
  Weight: 93.07 kg

DRUGS (9)
  1. EFFEXOR XR [Suspect]
     Indication: ANXIETY
     Dosage: 75 MG 1X PER 1 DAY, ORAL
     Route: 048
     Dates: start: 20041101, end: 20040101
  2. EFFEXOR XR [Suspect]
     Indication: TREMOR
     Dosage: 75 MG 1X PER 1 DAY, ORAL
     Route: 048
     Dates: start: 20041101, end: 20040101
  3. ZOCOR [Concomitant]
  4. METFORMIN HCL [Concomitant]
  5. HYDROCHLOROTHIAZID (HYDROCHLOROTHIAZIDE) [Concomitant]
  6. AMBEIN (ZOLPIDEM TARTRATE) [Concomitant]
  7. DIAZEPAM [Concomitant]
  8. LISINOPRIL [Concomitant]
  9. ACETYLSALICYLIC ACID (ACETYLSALICYCLIC ACID) [Concomitant]

REACTIONS (5)
  - CHEST DISCOMFORT [None]
  - CHEST PAIN [None]
  - DYSPNOEA [None]
  - SWOLLEN TONGUE [None]
  - THROAT TIGHTNESS [None]
